FAERS Safety Report 5040589-5 (Version None)
Quarter: 2006Q2

REPORT INFORMATION
  Report Type: 
  Country: None (occurrence: None)
  Receive Date: 20060630
  Receipt Date: 20060620
  Transmission Date: 20061013
  Serious: Yes (Death, Other)
  Sender: FDA-Public Use
  Company Number: DE-GILEAD-2006-0009788

PATIENT
  Sex: Male
  Weight: 52.2 kg

DRUGS (1)
  1. VIREAD [Suspect]
     Indication: HIV INFECTION
     Route: 048
     Dates: start: 20050803, end: 20051205

REACTIONS (3)
  - COMA HEPATIC [None]
  - FANCONI SYNDROME ACQUIRED [None]
  - GLYCOSURIA [None]
